FAERS Safety Report 8209919-7 (Version None)
Quarter: 2012Q1

REPORT INFORMATION
  Report Type: 
  Country: None (occurrence: None)
  Receive Date: 20120314
  Receipt Date: 20110822
  Transmission Date: 20120608
  Serious: No
  Sender: FDA-Public Use
  Company Number: US-ASTRAZENECA-2011SE50256

PATIENT
  Age: 48 Year
  Sex: Female
  Weight: 180 kg

DRUGS (11)
  1. IRON [Concomitant]
  2. PROMETHAZINE [Concomitant]
  3. TOPROL-XL [Suspect]
     Indication: CARDIAC DISORDER
     Route: 048
     Dates: start: 20110801
  4. LASIX [Concomitant]
  5. CRESTOR [Suspect]
     Indication: HYPERCHOLESTEROLAEMIA
     Route: 048
     Dates: start: 20110801
  6. SPIRONOLACTONE [Concomitant]
  7. VITAMIN TAB [Concomitant]
  8. FLEXERIL [Concomitant]
  9. ASPIRIN [Concomitant]
  10. SEROQUEL [Suspect]
     Indication: MENTAL DISORDER
     Route: 048
     Dates: start: 20070101
  11. POTASSIUM [Concomitant]

REACTIONS (4)
  - BRADYCARDIA [None]
  - DRUG DOSE OMISSION [None]
  - OFF LABEL USE [None]
  - DRUG WITHDRAWAL SYNDROME [None]
